FAERS Safety Report 6857595-8 (Version None)
Quarter: 2010Q3

REPORT INFORMATION
  Report Type: 
  Country: None (occurrence: None)
  Receive Date: 20100719
  Receipt Date: 20080128
  Transmission Date: 20110219
  Serious: No
  Sender: FDA-Public Use
  Company Number: US-PFIZER INC-2008009055

PATIENT
  Sex: Male
  Weight: 55.5 kg

DRUGS (3)
  1. CHANTIX [Suspect]
     Indication: SMOKING CESSATION THERAPY
  2. TYLENOL [Concomitant]
     Indication: PAIN
  3. CARBAMAZEPINE [Concomitant]

REACTIONS (9)
  - ANGINA PECTORIS [None]
  - CRYING [None]
  - DEPRESSION [None]
  - DIARRHOEA [None]
  - DIZZINESS [None]
  - NAUSEA [None]
  - RHINORRHOEA [None]
  - SLEEP DISORDER [None]
  - VOMITING [None]
